FAERS Safety Report 9158559 (Version 1)
Quarter: 2013Q1

REPORT INFORMATION
  Report Type: Spontaneous
  Country: US (occurrence: US)
  Receive Date: 20130312
  Receipt Date: 20130312
  Transmission Date: 20140127
  Serious: No
  Sender: FDA-Public Use
  Company Number: US-BAYER-2013-029987

PATIENT
  Age: 82 Year
  Sex: Male

DRUGS (2)
  1. LEVITRA [Suspect]
     Indication: ERECTILE DYSFUNCTION
     Dosage: 20 MG,2-3 TIMES A WEEK
     Dates: start: 20120616, end: 201212
  2. ANTIHYPERTENSIVES [Concomitant]

REACTIONS (1)
  - Drug ineffective [None]
